FAERS Safety Report 5424451-1 (Version None)
Quarter: 2007Q3

REPORT INFORMATION
  Report Type: 
  Country: None (occurrence: None)
  Receive Date: 20070823
  Receipt Date: 20070822
  Transmission Date: 20080115
  Serious: Yes (Other)
  Sender: FDA-Public Use
  Company Number: GB-MERCK-0701GBR00032

PATIENT
  Age: 69 Year
  Sex: Female

DRUGS (6)
  1. ZOCOR [Suspect]
     Indication: HYPERLIPIDAEMIA
     Route: 048
     Dates: start: 20061101, end: 20061120
  2. ITRACONAZOLE [Suspect]
     Indication: OESOPHAGEAL CANDIDIASIS
     Route: 048
     Dates: start: 20061027, end: 20061110
  3. BENDROFLUMETHIAZIDE [Concomitant]
     Indication: HYPERTENSION
     Route: 048
     Dates: end: 20061123
  4. CITALOPRAM [Concomitant]
     Indication: DEPRESSED MOOD
     Route: 048
     Dates: start: 20060818, end: 20060910
  5. CITALOPRAM [Concomitant]
     Route: 048
     Dates: start: 20060910, end: 20061027
  6. CITALOPRAM [Concomitant]
     Route: 048
     Dates: start: 20061027, end: 20061123

REACTIONS (7)
  - FALL [None]
  - MALAISE [None]
  - MUSCLE ATROPHY [None]
  - MUSCULAR WEAKNESS [None]
  - MYALGIA [None]
  - POLYMYOSITIS [None]
  - RHABDOMYOLYSIS [None]
